FAERS Safety Report 17250070 (Version 1)
Quarter: 2020Q1

REPORT INFORMATION
  Report Type: Report from Study
  Country: US (occurrence: SG)
  Receive Date: 20200109
  Receipt Date: 20200109
  Transmission Date: 20200409
  Serious: Yes (Death, Other)
  Sender: FDA-Public Use
  Company Number: US-ROCHE-2516464

PATIENT

DRUGS (7)
  1. RITUXIMAB. [Suspect]
     Active Substance: RITUXIMAB
     Indication: HAEMATOLOGICAL MALIGNANCY
     Route: 065
  2. SIROLIMUS. [Suspect]
     Active Substance: SIROLIMUS
     Indication: PROPHYLAXIS AGAINST GRAFT VERSUS HOST DISEASE
     Route: 065
  3. FLUDARABINE [Suspect]
     Active Substance: FLUDARABINE PHOSPHATE
     Indication: HAEMATOLOGICAL MALIGNANCY
     Dosage: FLUDARABINE 160 MG/M2 DIVIDED DAILY OVER 4 DAYS
     Route: 065
  4. THIOTEPA. [Suspect]
     Active Substance: THIOTEPA
     Indication: HAEMATOLOGICAL MALIGNANCY
     Dosage: DIVIDED TWICE DAILY FOR 1 DAY
     Route: 065
  5. MYCOPHENOLATE MOFETIL. [Suspect]
     Active Substance: MYCOPHENOLATE MOFETIL
     Indication: PROPHYLAXIS AGAINST GRAFT VERSUS HOST DISEASE
     Route: 065
  6. MELPHALAN. [Suspect]
     Active Substance: MELPHALAN
     Indication: HAEMATOLOGICAL MALIGNANCY
     Dosage: 70-140 MG/M2 FOR 1 DAY
     Route: 065
  7. TACROLIMUS. [Suspect]
     Active Substance: TACROLIMUS
     Indication: PROPHYLAXIS AGAINST GRAFT VERSUS HOST DISEASE
     Route: 065

REACTIONS (6)
  - Fusarium infection [Fatal]
  - Human herpesvirus 6 infection [Unknown]
  - Adenovirus infection [Unknown]
  - Bacterial infection [Fatal]
  - Cytomegalovirus infection [Unknown]
  - Epstein-Barr virus infection [Unknown]
